FAERS Safety Report 4973373-9 (Version None)
Quarter: 2006Q2

REPORT INFORMATION
  Report Type: 
  Country: None (occurrence: None)
  Receive Date: 20060414
  Receipt Date: 20060404
  Transmission Date: 20061013
  Serious: Yes (Death)
  Sender: FDA-Public Use
  Company Number: US-JNJFOC-20060302878

PATIENT
  Sex: Female

DRUGS (9)
  1. TOPAMAX [Suspect]
     Indication: DRUG USE FOR UNKNOWN INDICATION
     Route: 048
  2. PLAVIX [Concomitant]
  3. K+ [Concomitant]
  4. LASIX [Concomitant]
  5. PROTONIX [Concomitant]
  6. LYRICA [Concomitant]
     Indication: NEUROPATHY
  7. RELAFEN [Concomitant]
  8. EFFEXOR XR [Concomitant]
  9. SEROQUEL [Concomitant]

REACTIONS (1)
  - PNEUMONIA [None]
